FAERS Safety Report 5051781-8 (Version None)
Quarter: 2006Q3

REPORT INFORMATION
  Report Type: 
  Country: None (occurrence: None)
  Receive Date: 20060714
  Receipt Date: 20060714
  Transmission Date: 20061208
  Serious: Yes (Hospitalization)
  Sender: FDA-Public Use
  Company Number: None

PATIENT
  Age: 63 Year
  Sex: Female
  Weight: 83.9154 kg

DRUGS (1)
  1. EVISTA [Suspect]
     Indication: OSTEOPOROSIS
     Dosage: 60MG ONCE A DAY PO
     Route: 048
     Dates: start: 20030331, end: 20060707

REACTIONS (2)
  - CEREBROVASCULAR ACCIDENT [None]
  - HYPOKINESIA [None]
